FAERS Safety Report 18402209 (Version 3)
Quarter: 2020Q4

REPORT INFORMATION
  Report Type: Report from Study
  Country: US (occurrence: US)
  Receive Date: 20201019
  Receipt Date: 20201022
  Transmission Date: 20210114
  Serious: No
  Sender: FDA-Public Use
  Company Number: NVSC2020US276072

PATIENT
  Age: 71 Year
  Sex: Female
  Weight: 51.71 kg

DRUGS (1)
  1. COSENTYX [Suspect]
     Active Substance: SECUKINUMAB
     Indication: RHEUMATOID ARTHRITIS
     Dosage: 150 MG, Q4W
     Route: 058
     Dates: start: 20200825

REACTIONS (4)
  - Productive cough [Unknown]
  - Product use in unapproved indication [Unknown]
  - Sputum discoloured [Unknown]
  - Haemoptysis [Unknown]

NARRATIVE: CASE EVENT DATE: 20200828
